FAERS Safety Report 17841405 (Version 2)
Quarter: 2020Q2

REPORT INFORMATION
  Report Type: Spontaneous
  Country: CN (occurrence: CN)
  Receive Date: 20200529
  Receipt Date: 20200610
  Transmission Date: 20200714
  Serious: Yes (Other)
  Sender: FDA-Public Use
  Company Number: CN-ROCHE-2609148

PATIENT
  Age: 56 Year
  Sex: Male

DRUGS (19)
  1. VINDESINE [Concomitant]
     Active Substance: VINDESINE
     Route: 065
     Dates: start: 20200425
  2. VORICONAZOLE. [Concomitant]
     Active Substance: VORICONAZOLE
  3. CYCLOPHOSPHAMIDE. [Concomitant]
     Active Substance: CYCLOPHOSPHAMIDE
     Indication: DIFFUSE LARGE B-CELL LYMPHOMA
     Route: 065
     Dates: start: 20200407
  4. CEFDINIR. [Concomitant]
     Active Substance: CEFDINIR
     Route: 048
     Dates: start: 20200425
  5. DOXORUBICIN [Concomitant]
     Active Substance: DOXORUBICIN
     Indication: DIFFUSE LARGE B-CELL LYMPHOMA
     Route: 065
     Dates: start: 20200425
  6. BORTEZOMIB. [Concomitant]
     Active Substance: BORTEZOMIB
     Route: 065
     Dates: start: 20200425
  7. VINDESINE [Concomitant]
     Active Substance: VINDESINE
     Indication: DIFFUSE LARGE B-CELL LYMPHOMA
     Route: 065
     Dates: start: 20200407
  8. PIPERACILLINE / TAZOBACTAM [Concomitant]
     Active Substance: PIPERACILLIN SODIUM\TAZOBACTAM SODIUM
  9. CASPOFUNGIN [Concomitant]
     Active Substance: CASPOFUNGIN
  10. AZTREONAM. [Concomitant]
     Active Substance: AZTREONAM
  11. PREDNISONE. [Concomitant]
     Active Substance: PREDNISONE
     Indication: DIFFUSE LARGE B-CELL LYMPHOMA
     Route: 065
     Dates: start: 20200407
  12. MABTHERA [Suspect]
     Active Substance: RITUXIMAB
     Dosage: DAY 0 21 DAYS A CYCLES
     Route: 065
     Dates: start: 20200425
  13. CYCLOPHOSPHAMIDE. [Concomitant]
     Active Substance: CYCLOPHOSPHAMIDE
     Route: 065
     Dates: start: 20200425
  14. EPIRUBICIN [Concomitant]
     Active Substance: EPIRUBICIN
     Indication: DIFFUSE LARGE B-CELL LYMPHOMA
     Route: 065
     Dates: start: 20200407
  15. MOXIFLOXACIN. [Concomitant]
     Active Substance: MOXIFLOXACIN
  16. IMIPENEM AND CILASTATIN [Concomitant]
     Active Substance: CILASTATIN SODIUM\IMIPENEM
  17. METHYLPREDNISOLONE SODIUM SUCCINATE. [Concomitant]
     Active Substance: METHYLPREDNISOLONE SODIUM SUCCINATE
     Route: 065
     Dates: start: 20200425
  18. MABTHERA [Suspect]
     Active Substance: RITUXIMAB
     Indication: DIFFUSE LARGE B-CELL LYMPHOMA
     Route: 065
     Dates: start: 20200407
  19. TIGECYCLINE. [Concomitant]
     Active Substance: TIGECYCLINE

REACTIONS (2)
  - Bone marrow failure [Unknown]
  - Anaemia [Unknown]
